FAERS Safety Report 9408646 (Version 2)
Quarter: 2013Q3

REPORT INFORMATION
  Report Type: Report from Study
  Country: CA (occurrence: CA)
  Receive Date: 20130718
  Receipt Date: 20130830
  Transmission Date: 20140515
  Serious: Yes (Death)
  Sender: FDA-Public Use
  Company Number: CA-ALLERGAN-1310532US

PATIENT
  Age: 71 Year
  Sex: Male
  Weight: 104.76 kg

DRUGS (4)
  1. BOTULINUM TOXIN TYPE A - GENERAL (9060X) [Suspect]
     Indication: MUSCLE SPASTICITY
     Dosage: 300 UNITS, SINGLE
     Route: 030
     Dates: start: 20100312, end: 20100312
  2. BOTULINUM TOXIN TYPE A - GENERAL (9060X) [Suspect]
     Dosage: 300 UNITS, SINGLE
     Route: 030
     Dates: start: 20091218, end: 20091218
  3. BOTULINUM TOXIN TYPE A - GENERAL (9060X) [Suspect]
     Dosage: 400 UNITS, SINGLE
     Route: 030
     Dates: start: 20090718, end: 20090718
  4. BOTULINUM TOXIN TYPE A - GENERAL (9060X) [Suspect]
     Dosage: 400 UNITS, SINGLE
     Route: 030
     Dates: start: 20070612, end: 20070612

REACTIONS (1)
  - Death [Fatal]
